FAERS Safety Report 6555684-9 (Version None)
Quarter: 2010Q1

REPORT INFORMATION
  Report Type: 
  Country: None (occurrence: None)
  Receive Date: 20100128
  Receipt Date: 20100119
  Transmission Date: 20100710
  Serious: Yes (Other)
  Sender: FDA-Public Use
  Company Number: PHHY2009CA51215

PATIENT

DRUGS (2)
  1. ALISKIREN ALI+ [Suspect]
     Dosage: 150 MG
  2. DIURETICS [Concomitant]

REACTIONS (2)
  - URINE ALBUMIN/CREATININE RATIO INCREASED [None]
  - VERTIGO POSITIONAL [None]
